FAERS Safety Report 7039985 (Version 84)
Quarter: 2019Q3

REPORT INFORMATION
  Report Type: Spontaneous
  Country: GB (occurrence: GB)
  Receive Date: 20070227
  Receipt Date: 20190913
  Transmission Date: 20191005
  Serious: Yes (Other)
  Sender: FDA-Public Use
  Company Number: GB-PFIZER INC-GB-WYE-G01593808

PATIENT
  Age: 78 Year
  Sex: Male
  Weight: 78 kg

DRUGS (14)
  1. ASPIRIN. [Suspect]
     Active Substance: ASPIRIN
     Dosage: 75 MILLIGRAM, QD
     Route: 065
  2. BISOPROLOL FUMARATE. [Suspect]
     Active Substance: BISOPROLOL FUMARATE
     Dosage: 7.5 MG, 1X/DAY (2MG IN THE MORNING AND 5MG LATER)
     Route: 048
  3. WARFARIN [Concomitant]
     Active Substance: WARFARIN
     Dosage: UNK
  4. ACIPIMOX [Suspect]
     Active Substance: ACIPIMOX
     Dosage: 250 MILLIGRAM, BID
     Route: 048
  5. ACIPIMOX [Suspect]
     Active Substance: ACIPIMOX
     Dosage: 500 MILLIGRAM, QD
     Route: 065
  6. AMIODARONE HCL [Suspect]
     Active Substance: AMIODARONE HYDROCHLORIDE
     Dosage: 200 MG, 1X/DAY
     Route: 065
  7. DIGOXIN. [Suspect]
     Active Substance: DIGOXIN
     Dosage: 0.125 MILLIGRAM DAILY
  8. EZETROL [Suspect]
     Active Substance: EZETIMIBE
     Dosage: 10 MILLIGRAM, QD
     Route: 048
  9. DIGOXIN. [Suspect]
     Active Substance: DIGOXIN
     Dosage: 0.13 MILLIGRAM, QD:
     Route: 065
  10. FRUSEMIDE [Suspect]
     Active Substance: FUROSEMIDE
     Dosage: 80 MILLIGRAM, BID
  11. FRUSEMIDE [Suspect]
     Active Substance: FUROSEMIDE
     Dosage: 160 MG,QD
     Route: 065
  12. ZOTON [Suspect]
     Active Substance: LANSOPRAZOLE
     Dosage: 30 MG, 1X/DAY
     Route: 065
  13. PERINDOPRIL [Suspect]
     Active Substance: PERINDOPRIL
     Dosage: 2 MILLIGRAM, QD
     Route: 048
  14. FRUSEMIDE [Suspect]
     Active Substance: FUROSEMIDE
     Dosage: 120 MILLIGRAM, QD
     Route: 065

REACTIONS (15)
  - Atrial fibrillation [Unknown]
  - Paraesthesia [Unknown]
  - Dissociation [Unknown]
  - Ventricular tachycardia [Unknown]
  - Dyspnoea exertional [Unknown]
  - Left ventricular dysfunction [Unknown]
  - Dyspnoea [Unknown]
  - Feeling abnormal [Unknown]
  - Oedema peripheral [Unknown]
  - Fatigue [Unknown]
  - Cardiac murmur [Unknown]
  - Dizziness [Unknown]
  - Venous pressure jugular increased [Unknown]
  - Drug ineffective [Unknown]
  - Oedema [Unknown]
